FAERS Safety Report 15099104 (Version 2)
Quarter: 2018Q4

REPORT INFORMATION
  Report Type: Report from Study
  Country: FR (occurrence: FR)
  Receive Date: 20180702
  Receipt Date: 20181018
  Transmission Date: 20190204
  Serious: Yes (Other)
  Sender: FDA-Public Use
  Company Number: FR-GILEAD-2018-0335469

PATIENT
  Age: 28 Year
  Sex: Female
  Weight: 116 kg

DRUGS (5)
  1. FUMAFER [Concomitant]
     Active Substance: FERROUS FUMARATE
     Indication: DEFICIENCY ANAEMIA
     Dosage: UNK
     Route: 065
     Dates: start: 20170202, end: 20170502
  2. RETROVIR [Concomitant]
     Active Substance: ZIDOVUDINE
     Indication: PERINATAL HIV INFECTION
     Dosage: UNK
     Route: 042
     Dates: start: 20171025
  3. EMTRICITABINE/RILPIVIRINE/TENOFOVIR DF [Suspect]
     Active Substance: EMTRICITABINE\RILPIVIRINE\TENOFOVIR DISOPROXIL FUMARATE
     Indication: HIV INFECTION
     Dosage: 1 DF, QD
     Route: 048
     Dates: start: 20161024
  4. DAFALGAN [Concomitant]
     Active Substance: ACETAMINOPHEN
     Indication: HEADACHE
     Dosage: UNK
     Route: 065
     Dates: start: 20170202, end: 20171212
  5. LACTULOSE. [Concomitant]
     Active Substance: LACTULOSE
     Indication: CONSTIPATION
     Route: 065

REACTIONS (2)
  - Gestational diabetes [Unknown]
  - Maternal exposure during pregnancy [Recovered/Resolved]

NARRATIVE: CASE EVENT DATE: 20170205
